FAERS Safety Report 5166157-2 (Version None)
Quarter: 2006Q4

REPORT INFORMATION
  Report Type: 
  Country: None (occurrence: None)
  Receive Date: 20061129
  Receipt Date: 20061120
  Transmission Date: 20070319
  Serious: Yes (Other)
  Sender: FDA-Public Use
  Company Number: 2006143925

PATIENT
  Age: 81 Year
  Sex: Female
  Weight: 53.978 kg

DRUGS (9)
  1. XALATAN [Suspect]
     Indication: EYE HAEMORRHAGE
     Dosage: (1 IN 1 D)
  2. TYLENOL [Concomitant]
  3. LASIX [Concomitant]
  4. CALCIUM WITH VITAMIN D (CALCIUM PHOSPATE, CALCIUM SODIUM LACTATE, ERGO [Concomitant]
  5. NICOTINAMIDE                    (NICTINAMIDE) [Concomitant]
  6. DIAZEPAM [Concomitant]
  7. LISINORPIL                 (LISINOPRIL) [Concomitant]
  8. COZAAR [Concomitant]
  9. VYTORIN [Concomitant]

REACTIONS (2)
  - PRURITUS GENERALISED [None]
  - VISION BLURRED [None]
